FAERS Safety Report 20262800 (Version 3)
Quarter: 2022Q1

REPORT INFORMATION
  Report Type: Report from Study
  Country: CA (occurrence: CA)
  Receive Date: 20211231
  Receipt Date: 20220210
  Transmission Date: 20220423
  Serious: Yes (Hospitalization, Other)
  Sender: FDA-Public Use
  Company Number: CA-JNJFOC-20211160391

PATIENT
  Age: 78 Year
  Sex: Male
  Weight: 66 kg

DRUGS (3)
  1. REMICADE [Suspect]
     Active Substance: INFLIXIMAB
     Indication: Colitis ulcerative
     Dosage: PATIENT RECEIVED REMICADE ON 23-DEC-2021
     Route: 042
     Dates: start: 20211110, end: 20220104
  2. REMICADE [Suspect]
     Active Substance: INFLIXIMAB
     Route: 042
  3. VENTOLIN [Concomitant]
     Active Substance: ALBUTEROL SULFATE
     Indication: Product used for unknown indication
     Route: 055

REACTIONS (8)
  - Oxygen saturation decreased [Recovered/Resolved]
  - Blood pressure increased [Recovered/Resolved]
  - Tachycardia [Recovered/Resolved]
  - Dyspnoea [Recovered/Resolved]
  - Infusion related reaction [Recovered/Resolved]
  - Respiratory rate increased [Unknown]
  - Drug specific antibody present [Unknown]
  - Drug level decreased [Unknown]

NARRATIVE: CASE EVENT DATE: 20211126
